FAERS Safety Report 21403715 (Version 6)
Quarter: 2024Q3

REPORT INFORMATION
  Report Type: Spontaneous
  Country: US (occurrence: US)
  Receive Date: 20221003
  Receipt Date: 20240906
  Transmission Date: 20241016
  Serious: No
  Sender: PHARMING GROUP
  Company Number: US-PHARMING-PHAUS2022000678

PATIENT

DRUGS (5)
  1. RUCONEST [Suspect]
     Active Substance: CONESTAT ALFA
     Indication: Hereditary angioedema
     Dosage: UNK
     Dates: start: 20210818
  2. RUCONEST [Suspect]
     Active Substance: CONESTAT ALFA
     Indication: Hereditary angioedema with C1 esterase inhibitor deficiency
     Dosage: 3500 IU, AS NEEDED
     Route: 042
     Dates: start: 202203
  3. RUCONEST [Suspect]
     Active Substance: CONESTAT ALFA
     Dosage: 3500 IU, AS NEEDED
     Route: 042
     Dates: start: 202203
  4. RUCONEST [Suspect]
     Active Substance: CONESTAT ALFA
     Dosage: 4200 IU, PRN
     Route: 042
     Dates: start: 202203
  5. TAKHZYRO [Concomitant]
     Active Substance: LANADELUMAB-FLYO
     Indication: Product used for unknown indication

REACTIONS (2)
  - Weight fluctuation [Not Recovered/Not Resolved]
  - Product use issue [Recovering/Resolving]
